FAERS Safety Report 16688579 (Version 1)
Quarter: 2019Q4

REPORT INFORMATION
  Report Type: Spontaneous
  Country: US (occurrence: US)
  Receive Date: 20190809
  Receipt Date: 20190809
  Transmission Date: 20200122
  Serious: Yes (Hospitalization)
  Sender: FDA-Public Use
  Company Number: None

PATIENT
  Age: 69 Year
  Sex: Female
  Weight: 68.85 kg

DRUGS (17)
  1. PRIMIDONE. [Concomitant]
     Active Substance: PRIMIDONE
  2. TOUJEO [Concomitant]
     Active Substance: INSULIN GLARGINE
  3. TRILEPTAL [Concomitant]
     Active Substance: OXCARBAZEPINE
  4. KEPPRA [Concomitant]
     Active Substance: LEVETIRACETAM
  5. LACTULOSE. [Concomitant]
     Active Substance: LACTULOSE
  6. CEPHALEXIN. [Concomitant]
     Active Substance: CEPHALEXIN
  7. NAPROXEN. [Concomitant]
     Active Substance: NAPROXEN
  8. GABAPENTIN. [Concomitant]
     Active Substance: GABAPENTIN
  9. METOPROLOL. [Concomitant]
     Active Substance: METOPROLOL
  10. LEVOTHYROXINE. [Concomitant]
     Active Substance: LEVOTHYROXINE
  11. AMLODIPINE [Concomitant]
     Active Substance: AMLODIPINE BESYLATE
  12. FERROUS SULFATE. [Concomitant]
     Active Substance: FERROUS SULFATE
  13. XIFAXAN [Suspect]
     Active Substance: RIFAXIMIN
     Route: 048
  14. NOVOLOG [Concomitant]
     Active Substance: INSULIN ASPART
  15. NEXIUM [Concomitant]
     Active Substance: ESOMEPRAZOLE MAGNESIUM
  16. HUMALOG [Concomitant]
     Active Substance: INSULIN LISPRO
  17. CEPHALEXIN. [Concomitant]
     Active Substance: CEPHALEXIN

REACTIONS (1)
  - Dysarthria [None]

NARRATIVE: CASE EVENT DATE: 20190808
